FAERS Safety Report 6285260-7 (Version None)
Quarter: 2009Q3

REPORT INFORMATION
  Report Type: 
  Country: None (occurrence: None)
  Receive Date: 20090727
  Receipt Date: 20090720
  Transmission Date: 20100115
  Serious: No
  Sender: FDA-Public Use
  Company Number: US-JNJFOC-20090606904

PATIENT
  Sex: Female

DRUGS (5)
  1. DURAGESIC-100 [Suspect]
     Route: 062
  2. DURAGESIC-100 [Suspect]
     Indication: DRUG USE FOR UNKNOWN INDICATION
     Route: 062
  3. ZOLOFT [Concomitant]
     Indication: PERSONALITY DISORDER
  4. TRAZODONE [Concomitant]
     Indication: PERSONALITY DISORDER
  5. KLONOPIN [Concomitant]
     Indication: PERSONALITY DISORDER

REACTIONS (5)
  - APPLICATION SITE VESICLES [None]
  - DEVICE ADHESION ISSUE [None]
  - DRUG PRESCRIBING ERROR [None]
  - RASH [None]
  - WRONG TECHNIQUE IN DRUG USAGE PROCESS [None]
